FAERS Safety Report 4759583-4 (Version None)
Quarter: 2005Q3

REPORT INFORMATION
  Report Type: 
  Country: None (occurrence: None)
  Receive Date: 20050901
  Receipt Date: 20050309
  Transmission Date: 20060218
  Serious: Yes (Hospitalization)
  Sender: FDA-Public Use
  Company Number: US-MERCK-0503USA01672

PATIENT
  Age: 67 Year
  Sex: Male

DRUGS (3)
  1. VIOXX [Suspect]
     Indication: ARTHROPATHY
     Route: 048
     Dates: start: 19990101, end: 20020101
  2. AMBIEN [Concomitant]
     Indication: SLEEP DISORDER
     Route: 065
  3. ASPIRIN [Concomitant]
     Route: 065

REACTIONS (11)
  - ACUTE MYOCARDIAL INFARCTION [None]
  - ATELECTASIS [None]
  - CARDIAC DISORDER [None]
  - CARDIOMEGALY [None]
  - CHEST WALL PAIN [None]
  - CORONARY ARTERY DISEASE [None]
  - DIZZINESS [None]
  - GASTROENTERITIS [None]
  - HEADACHE [None]
  - PLEURAL EFFUSION [None]
  - VASCULAR CALCIFICATION [None]
